FAERS Safety Report 6763203-7 (Version None)
Quarter: 2010Q2

REPORT INFORMATION
  Report Type: 
  Country: None (occurrence: None)
  Receive Date: 20100609
  Receipt Date: 20100602
  Transmission Date: 20101027
  Serious: Yes (Death, Life-Threatening, Hospitalization, Other)
  Sender: FDA-Public Use
  Company Number: DE-MERCK-1004DEU00002

PATIENT
  Age: 65 Year
  Sex: Male
  Weight: 135 kg

DRUGS (4)
  1. JANUMET [Suspect]
     Indication: DIABETES MELLITUS
     Route: 048
     Dates: start: 20100303
  2. HYDROCHLOROTHIAZIDE AND TELMISARTAN [Concomitant]
     Indication: HYPERTENSION
     Route: 048
     Dates: start: 20080725
  3. NEBIVOLOL [Concomitant]
     Indication: HYPERTENSION
     Route: 065
     Dates: start: 20081229
  4. LERCANIDIPINE HYDROCHLORIDE [Concomitant]
     Indication: HYPERTENSION
     Route: 048
     Dates: start: 20080919

REACTIONS (7)
  - ATRIAL FIBRILLATION [None]
  - CEREBELLAR INFARCTION [None]
  - DEEP VEIN THROMBOSIS [None]
  - PELVIC VENOUS THROMBOSIS [None]
  - PULMONARY EMBOLISM [None]
  - RENAL FAILURE ACUTE [None]
  - TRACHEOBRONCHITIS [None]
